FAERS Safety Report 8618076-4 (Version None)
Quarter: 2012Q3

REPORT INFORMATION
  Report Type: 
  Country: None (occurrence: None)
  Receive Date: 20120824
  Receipt Date: 20120424
  Transmission Date: 20120928
  Serious: No
  Sender: FDA-Public Use
  Company Number: US-ASTRAZENECA-2012SE26782

PATIENT
  Sex: Female

DRUGS (2)
  1. SYMBICORT [Suspect]
     Indication: CHRONIC OBSTRUCTIVE PULMONARY DISEASE
     Dosage: UNKNOWN STRENGTH AND FREQUENCY
     Route: 055
  2. FLUTICASONE PROPIONATE [Concomitant]

REACTIONS (5)
  - NASOPHARYNGITIS [None]
  - PARAESTHESIA [None]
  - MUSCLE SPASMS [None]
  - HAEMATOMA [None]
  - COUGH [None]
